FAERS Safety Report 10216026 (Version 1)
Quarter: 2014Q2

REPORT INFORMATION
  Report Type: Spontaneous
  Country: US (occurrence: None)
  Receive Date: 20140603
  Receipt Date: 20140603
  Transmission Date: 20141212
  Serious: Yes (Disabling)
  Sender: FDA-Public Use
  Company Number: None

PATIENT
  Age: 41 Year
  Sex: Female
  Weight: 62.6 kg

DRUGS (1)
  1. SCOPOLAMINE, TRANSDERMAL [Suspect]
     Indication: PROPHYLAXIS AGAINST MOTION SICKNESS
     Dosage: 1 PATCH/3 DAYS REPLACE/ 3 DAYS  APPLIED AS MEDICATED PATCH TO SKIN
     Route: 062
     Dates: start: 20140523, end: 20140530

REACTIONS (7)
  - Vision blurred [None]
  - Dry mouth [None]
  - Dizziness [None]
  - Motion sickness [None]
  - Nausea [None]
  - Vomiting [None]
  - Muscular weakness [None]
